FAERS Safety Report 13070580 (Version 1)
Quarter: 2016Q4

REPORT INFORMATION
  Report Type: Spontaneous
  Country: US (occurrence: US)
  Receive Date: 20161229
  Receipt Date: 20161229
  Transmission Date: 20170207
  Serious: No
  Sender: FDA-Public Use
  Company Number: US-B.I. PHARMACEUTICALS,INC./RIDGEFIELD-2016-BI-087332

PATIENT
  Sex: Female

DRUGS (1)
  1. PERSANTIN [Suspect]
     Active Substance: DIPYRIDAMOLE
     Indication: THROMBOSIS
     Dosage: ADMINISTRATION CORRECT? NR(NOT REPORTED) ?ACTION(S) TAKEN WITH PRODUCT: NOT REPORTED
     Route: 065

REACTIONS (4)
  - Fear of death [Unknown]
  - Depressed mood [Unknown]
  - Memory impairment [Unknown]
  - Fatigue [Unknown]
